FAERS Safety Report 4455273-6 (Version None)
Quarter: 2004Q3

REPORT INFORMATION
  Report Type: 
  Country: None (occurrence: None)
  Receive Date: 20040825
  Receipt Date: 20040624
  Transmission Date: 20050211
  Serious: No
  Sender: FDA-Public Use
  Company Number: 207386

PATIENT
  Age: 37 Year
  Sex: Male
  Weight: 88 kg

DRUGS (1)
  1. RAPTIVA [Suspect]
     Indication: PSORIASIS
     Dosage: 0.9 ML,1/WEEK,SUBCUTANEOUS
     Route: 058
     Dates: start: 20031231, end: 20040506

REACTIONS (3)
  - ARTHRALGIA [None]
  - MYALGIA [None]
  - RASH [None]
